FAERS Safety Report 17003210 (Version 1)
Quarter: 2019Q4

REPORT INFORMATION
  Report Type: Spontaneous
  Country: US (occurrence: US)
  Receive Date: 20191107
  Receipt Date: 20191107
  Transmission Date: 20200122
  Serious: No
  Sender: FDA-Public Use
  Company Number: US-ALLERGAN-1857338US

PATIENT
  Age: 73 Year
  Sex: Female

DRUGS (1)
  1. ALPHAGAN P [Suspect]
     Active Substance: BRIMONIDINE TARTRATE
     Indication: GLAUCOMA
     Dosage: THIRCE DAILY
     Route: 047
     Dates: start: 2011

REACTIONS (3)
  - Incorrect route of product administration [Unknown]
  - Product use complaint [Unknown]
  - Product container issue [Unknown]
